FAERS Safety Report 25240226 (Version 1)
Quarter: 2025Q2

REPORT INFORMATION
  Report Type: Spontaneous
  Country: US (occurrence: None)
  Receive Date: 20250422
  Receipt Date: 20250422
  Transmission Date: 20250717
  Serious: Yes (Other)
  Sender: FDA-CTU
  Company Number: None

PATIENT

DRUGS (1)
  1. GENTAMICIN [Suspect]
     Active Substance: GENTAMICIN

REACTIONS (2)
  - Catheter site pain [None]
  - Device malfunction [None]

NARRATIVE: CASE EVENT DATE: 20250421
